FAERS Safety Report 14308102 (Version 4)
Quarter: 2019Q1

REPORT INFORMATION
  Report Type: Report from Study
  Country: US (occurrence: US)
  Receive Date: 20171220
  Receipt Date: 20190227
  Transmission Date: 20190417
  Serious: Yes (Hospitalization, Other)
  Sender: FDA-Public Use
  Company Number: US-ASTRAZENECA-2017SE79498

PATIENT
  Sex: Female
  Weight: 129.3 kg

DRUGS (17)
  1. PROMETHAZINE HYDROCHLORIDE. [Concomitant]
     Active Substance: PROMETHAZINE HYDROCHLORIDE
     Dosage: 25.0MG AS REQUIRED
     Route: 048
     Dates: start: 20170321
  2. PROMETHAZINE HYDROCHLORIDE. [Concomitant]
     Active Substance: PROMETHAZINE HYDROCHLORIDE
     Dosage: 12.5MG AS REQUIRED
     Route: 048
     Dates: start: 20170403
  3. MULTIVITAMIN [Concomitant]
     Active Substance: VITAMINS
     Route: 048
     Dates: start: 20131212
  4. LYNPARZA [Suspect]
     Active Substance: OLAPARIB
     Indication: OVARIAN CANCER
     Route: 048
  5. LYNPARZA [Suspect]
     Active Substance: OLAPARIB
     Indication: OVARIAN CANCER
     Route: 048
     Dates: start: 20170503
  6. ATENOLOL. [Suspect]
     Active Substance: ATENOLOL
     Route: 048
     Dates: start: 20120123
  7. BACILLUS COAGULANS [Concomitant]
     Active Substance: BACILLUS COAGULANS
     Route: 048
     Dates: start: 20180918
  8. MELATONIN [Concomitant]
     Active Substance: MELATONIN
     Route: 048
     Dates: start: 20180918
  9. LYNPARZA [Suspect]
     Active Substance: OLAPARIB
     Indication: OVARIAN CANCER
     Route: 048
  10. LYNPARZA [Suspect]
     Active Substance: OLAPARIB
     Indication: OVARIAN CANCER
     Route: 048
     Dates: start: 20170503
  11. DIPHENOXYLATE HCL/ATROPINE [Concomitant]
     Route: 048
     Dates: start: 20151028
  12. WARFARIN SODIUM. [Concomitant]
     Active Substance: WARFARIN SODIUM
     Route: 048
     Dates: start: 20160404
  13. ZYLOPRIM [Concomitant]
     Active Substance: ALLOPURINOL
     Route: 046
     Dates: start: 20180529
  14. LOMOTIL [Concomitant]
     Active Substance: ATROPINE SULFATE\DIPHENOXYLATE HYDROCHLORIDE
     Dosage: 2.5-0.025
  15. LYNPARZA [Suspect]
     Active Substance: OLAPARIB
     Indication: OVARIAN CANCER
     Route: 048
  16. LYNPARZA [Suspect]
     Active Substance: OLAPARIB
     Indication: OVARIAN CANCER
     Route: 048
  17. LORAZEPAM. [Concomitant]
     Active Substance: LORAZEPAM
     Route: 048
     Dates: start: 20130707

REACTIONS (21)
  - Spinal fracture [Recovering/Resolving]
  - International normalised ratio decreased [Not Recovered/Not Resolved]
  - Anxiety [Unknown]
  - Vitamin D deficiency [Unknown]
  - Diarrhoea [Unknown]
  - International normalised ratio fluctuation [Unknown]
  - Animal bite [Unknown]
  - Hypertension [Unknown]
  - Depression [Unknown]
  - Arthritis [Unknown]
  - Skin odour abnormal [Unknown]
  - Pruritus generalised [Not Recovered/Not Resolved]
  - Vitamin B12 deficiency [Unknown]
  - Urinary tract infection [Not Recovered/Not Resolved]
  - International normalised ratio increased [Not Recovered/Not Resolved]
  - Type 2 diabetes mellitus [Unknown]
  - Rash [Unknown]
  - Cerebrovascular accident [Unknown]
  - Fibromyalgia [Unknown]
  - Muscle strain [Not Recovered/Not Resolved]
  - Product dose omission [Unknown]
